FAERS Safety Report 5182987-5 (Version None)
Quarter: 2006Q4

REPORT INFORMATION
  Report Type: 
  Country: None (occurrence: None)
  Receive Date: 20060919
  Receipt Date: 20060804
  Transmission Date: 20070319
  Serious: No
  Sender: FDA-Public Use
  Company Number: 2006US001791

PATIENT
  Age: 60 Year
  Sex: Female

DRUGS (6)
  1. VESICARE [Suspect]
     Dosage: 5 MG, UID/QD, ORAL
     Route: 048
     Dates: start: 20060803
  2. ASPIRIN [Concomitant]
  3. VITAMIN E (HERBAL OIL NOS) [Concomitant]
  4. SIMVASTATIN [Concomitant]
  5. NASONEX (MOMETASONE FUORATE) [Concomitant]
  6. PUFFERS [Concomitant]

REACTIONS (1)
  - URINARY INCONTINENCE [None]
